FAERS Safety Report 5076352-9 (Version None)
Quarter: 2006Q3

REPORT INFORMATION
  Report Type: 
  Country: None (occurrence: None)
  Receive Date: 20060807
  Receipt Date: 20060727
  Transmission Date: 20061208
  Serious: Yes (Hospitalization)
  Sender: FDA-Public Use
  Company Number: 2006-146121-NL

PATIENT
  Age: 24 Year
  Sex: Female

DRUGS (1)
  1. MENOTROPINS [Suspect]
     Indication: OVULATION INDUCTION
     Dosage: DF

REACTIONS (4)
  - ABORTION SPONTANEOUS [None]
  - DRUG EXPOSURE DURING PREGNANCY [None]
  - JUGULAR VEIN THROMBOSIS [None]
  - OVARIAN HYPERSTIMULATION SYNDROME [None]
